FAERS Safety Report 18693277 (Version 1)
Quarter: 2021Q1

REPORT INFORMATION
  Report Type: Spontaneous
  Country: US (occurrence: US)
  Receive Date: 20210104
  Receipt Date: 20210104
  Transmission Date: 20210419
  Serious: No
  Sender: FDA-Public Use
  Company Number: US-SA-2020SA374511

PATIENT

DRUGS (1)
  1. DUPIXENT [Suspect]
     Active Substance: DUPILUMAB
     Indication: DERMATITIS ATOPIC

REACTIONS (5)
  - Eye disorder [Unknown]
  - Treatment failure [Unknown]
  - Arthralgia [Unknown]
  - Fatigue [Unknown]
  - Alopecia [Unknown]

NARRATIVE: CASE EVENT DATE: 20190908
